FAERS Safety Report 4940291-1 (Version None)
Quarter: 2006Q1

REPORT INFORMATION
  Report Type: 
  Country: None (occurrence: None)
  Receive Date: 20060310
  Receipt Date: 20051223
  Transmission Date: 20060701
  Serious: Yes (Hospitalization, Other)
  Sender: FDA-Public Use
  Company Number: US-MERCK-0512USA03774

PATIENT
  Age: 58 Year
  Sex: Female
  Weight: 72 kg

DRUGS (1)
  1. VIOXX [Suspect]
     Indication: OSTEOARTHRITIS
     Route: 048
     Dates: start: 20001106, end: 20010830

REACTIONS (30)
  - ABDOMINAL PAIN [None]
  - ANAEMIA [None]
  - ATRIAL FIBRILLATION [None]
  - AXILLARY PAIN [None]
  - BRONCHITIS ACUTE [None]
  - CHEST PAIN [None]
  - CHRONIC OBSTRUCTIVE PULMONARY DISEASE [None]
  - CORONARY ARTERY DISEASE [None]
  - CORONARY ARTERY STENOSIS [None]
  - DIVERTICULUM [None]
  - EAR DISCOMFORT [None]
  - FIBULA FRACTURE [None]
  - GASTRITIS [None]
  - GASTROENTERITIS VIRAL [None]
  - GASTROINTESTINAL HAEMORRHAGE [None]
  - HEADACHE [None]
  - HELICOBACTER GASTRITIS [None]
  - HIATUS HERNIA [None]
  - IRON DEFICIENCY [None]
  - MUSCLE STRAIN [None]
  - MYOCARDIAL INFARCTION [None]
  - NON-CARDIAC CHEST PAIN [None]
  - OEDEMA PERIPHERAL [None]
  - OTITIS MEDIA [None]
  - PERIPHERAL VASCULAR DISORDER [None]
  - PHARYNGITIS [None]
  - REFLUX OESOPHAGITIS [None]
  - SINUSITIS [None]
  - THERAPY NON-RESPONDER [None]
  - VITAMIN B12 DEFICIENCY [None]
